FAERS Safety Report 6210613-2 (Version None)
Quarter: 2009Q2

REPORT INFORMATION
  Report Type: 
  Country: None (occurrence: None)
  Receive Date: 20090601
  Receipt Date: 20090527
  Transmission Date: 20091009
  Serious: Yes (Hospitalization, Other)
  Sender: FDA-Public Use
  Company Number: US-ASTRAZENECA-2009UW13600

PATIENT
  Age: 57 Year
  Sex: Male

DRUGS (13)
  1. CRESTOR [Suspect]
     Route: 048
     Dates: start: 20090101, end: 20090501
  2. COUMADIN [Concomitant]
     Route: 048
     Dates: end: 20090501
  3. HYDRALAZINE HCL [Concomitant]
     Route: 048
  4. FINASTERIDE [Concomitant]
     Route: 048
  5. LOPRESSOR [Concomitant]
     Route: 048
  6. INSULIN [Concomitant]
     Route: 058
  7. CILOSTAZOL [Concomitant]
     Route: 048
  8. ATROVENT [Concomitant]
     Route: 055
  9. LOSARTAN POTASSIUM [Concomitant]
     Route: 048
  10. GLYBURIDE [Concomitant]
     Route: 048
  11. VIAGRA [Concomitant]
     Route: 048
  12. MS CONTIN [Concomitant]
     Route: 048
  13. HYDROCODONE BITARTRATE [Concomitant]
     Route: 048

REACTIONS (13)
  - ALANINE AMINOTRANSFERASE INCREASED [None]
  - ASPARTATE AMINOTRANSFERASE INCREASED [None]
  - BLOOD BILIRUBIN INCREASED [None]
  - BLOOD GLUCOSE INCREASED [None]
  - BLOOD URINE PRESENT [None]
  - CHROMATURIA [None]
  - CONFUSIONAL STATE [None]
  - CREATININE RENAL CLEARANCE DECREASED [None]
  - GLOMERULAR FILTRATION RATE DECREASED [None]
  - HEPATITIS B SURFACE ANTIGEN POSITIVE [None]
  - PLEURAL EFFUSION [None]
  - RHABDOMYOLYSIS [None]
  - WHITE BLOOD CELL COUNT INCREASED [None]
